FAERS Safety Report 4855716-X (Version None)
Quarter: 2005Q4

REPORT INFORMATION
  Report Type: 
  Country: None (occurrence: None)
  Receive Date: 20051216
  Receipt Date: 20051207
  Transmission Date: 20060501
  Serious: Yes (Other)
  Sender: FDA-Public Use
  Company Number: US-ROCHE-427626

PATIENT
  Age: 53 Year
  Sex: Male

DRUGS (8)
  1. PEG-INTERFERON A-2A (RO 25-8310) [Suspect]
     Indication: GLOMERULONEPHRITIS
     Route: 065
     Dates: start: 20031015, end: 20040615
  2. RIBAVIRIN [Suspect]
     Indication: GLOMERULONEPHRITIS
     Route: 065
     Dates: start: 20031015, end: 20040615
  3. PREDNISONE [Suspect]
     Indication: GLOMERULONEPHRITIS
     Dosage: DOSE GRADUALLY TAPERED AFTER THREE WEEKS AND THEN DISCONTINUED AFTER 5 WEEKS.
     Route: 065
     Dates: start: 20040615
  4. HYDROCHLOROTHIAZIDE [Concomitant]
  5. LABETALOL [Concomitant]
  6. FUROSEMIDE [Concomitant]
  7. AMLODIPINE [Concomitant]
  8. PANTOPRAZOLE [Concomitant]

REACTIONS (7)
  - ACTIVATED PARTIAL THROMBOPLASTIN TIME PROLONGED [None]
  - CONTUSION [None]
  - FACTOR VIII INHIBITION [None]
  - HAEMATOCRIT DECREASED [None]
  - PURPURA [None]
  - SCLERAL HAEMORRHAGE [None]
  - THERAPY NON-RESPONDER [None]
